FAERS Safety Report 22239597 (Version 15)
Quarter: 2025Q1

REPORT INFORMATION
  Report Type: Spontaneous
  Country: CA (occurrence: CA)
  Receive Date: 20230421
  Receipt Date: 20250131
  Transmission Date: 20250408
  Serious: Yes (Other)
  Sender: PFIZER
  Company Number: CA-PFIZER INC-202300162072

PATIENT
  Age: 41 Year
  Sex: Female

DRUGS (6)
  1. RUXIENCE [Suspect]
     Active Substance: RITUXIMAB-PVVR
     Indication: Rheumatoid arthritis
     Route: 042
     Dates: start: 202106
  2. RUXIENCE [Suspect]
     Active Substance: RITUXIMAB-PVVR
     Route: 042
  3. RUXIENCE [Suspect]
     Active Substance: RITUXIMAB-PVVR
     Route: 042
  4. RUXIENCE [Suspect]
     Active Substance: RITUXIMAB-PVVR
     Route: 042
     Dates: start: 20230704
  5. RUXIENCE [Suspect]
     Active Substance: RITUXIMAB-PVVR
     Route: 042
     Dates: start: 20230717
  6. RUXIENCE [Suspect]
     Active Substance: RITUXIMAB-PVVR
     Route: 042
     Dates: start: 20250117

REACTIONS (21)
  - Blood iron decreased [Unknown]
  - Helicobacter gastritis [Recovered/Resolved]
  - Coeliac disease [Unknown]
  - Condition aggravated [Not Recovered/Not Resolved]
  - Therapeutic product effect incomplete [Unknown]
  - Sleep disorder due to general medical condition, insomnia type [Unknown]
  - Fatigue [Not Recovered/Not Resolved]
  - Serum ferritin decreased [Unknown]
  - Eye disorder [Not Recovered/Not Resolved]
  - Hyperchlorhydria [Unknown]
  - Arthritis [Unknown]
  - Asthenia [Not Recovered/Not Resolved]
  - Intraocular pressure increased [Not Recovered/Not Resolved]
  - Eye pain [Not Recovered/Not Resolved]
  - Dry eye [Not Recovered/Not Resolved]
  - Ocular hyperaemia [Not Recovered/Not Resolved]
  - Headache [Unknown]
  - Throat irritation [Recovered/Resolved]
  - Urticaria [Recovered/Resolved]
  - Gluten sensitivity [Unknown]
  - Off label use [Unknown]

NARRATIVE: CASE EVENT DATE: 20230101
